FAERS Safety Report 6050527-4 (Version None)
Quarter: 2009Q1

REPORT INFORMATION
  Report Type: 
  Country: None (occurrence: None)
  Receive Date: 20090126
  Receipt Date: 20090121
  Transmission Date: 20090719
  Serious: Yes (Other)
  Sender: FDA-Public Use
  Company Number: US-BAYER-200834938NA

PATIENT
  Age: 17 Year
  Sex: Female
  Weight: 59 kg

DRUGS (1)
  1. YASMIN [Suspect]
     Indication: AMENORRHOEA
     Route: 048
     Dates: start: 20070201, end: 20080929

REACTIONS (5)
  - BLINDNESS UNILATERAL [None]
  - CARPAL TUNNEL SYNDROME [None]
  - EPSTEIN-BARR VIRUS INFECTION [None]
  - FATIGUE [None]
  - MOOD SWINGS [None]
